FAERS Safety Report 15381896 (Version 2)
Quarter: 2018Q3

REPORT INFORMATION
  Report Type: Spontaneous
  Country: GR (occurrence: GR)
  Receive Date: 20180913
  Receipt Date: 20180926
  Transmission Date: 20181010
  Serious: Yes (Other)
  Sender: FDA-Public Use
  Company Number: GR-ALLERGAN-1844771US

PATIENT
  Age: 76 Year

DRUGS (2)
  1. DEX UNK [Suspect]
     Active Substance: UNSPECIFIED INGREDIENT
     Indication: MALIGNANT NEOPLASM OF CONJUNCTIVA
     Dosage: 0.7 MG, SINGLE
     Route: 031
  2. 5 FU [Concomitant]
     Active Substance: FLUOROURACIL
     Indication: MALIGNANT NEOPLASM OF CONJUNCTIVA
     Dosage: UNK

REACTIONS (7)
  - Corneal neovascularisation [Unknown]
  - Eye pain [Unknown]
  - Blister [Unknown]
  - Lacrimation increased [Unknown]
  - Malignant neoplasm of conjunctiva [Unknown]
  - Off label use [Unknown]
  - Drug intolerance [Unknown]
